FAERS Safety Report 21397285 (Version 2)
Quarter: 2022Q4

REPORT INFORMATION
  Report Type: Spontaneous
  Country: DE (occurrence: DE)
  Receive Date: 20220930
  Receipt Date: 20221017
  Transmission Date: 20230113
  Serious: Yes (Hospitalization)
  Sender: FDA-Public Use
  Company Number: DE-ADRED-08410-01

PATIENT
  Age: 77 Year
  Sex: Male
  Weight: 80 kg

DRUGS (13)
  1. SITAGLIPTIN PHOSPHATE [Interacting]
     Active Substance: SITAGLIPTIN PHOSPHATE
     Dosage: 50 MG, 0.5-0-0-0, TABLETS
     Route: 048
  2. TORSEMIDE [Suspect]
     Active Substance: TORSEMIDE
     Dosage: 10 MG, 1-0-0-0, TABLETS
     Route: 048
  3. CANDESARTAN [Suspect]
     Active Substance: CANDESARTAN
     Dosage: 16 MG, 0.5-0-0.5-0, TABLETS
     Route: 048
  4. CARVEDILOL [Suspect]
     Active Substance: CARVEDILOL
     Dosage: 6.25 MG, 1-0-1-0, TABLETS
     Route: 048
  5. ATORVASTATIN [Concomitant]
     Active Substance: ATORVASTATIN
     Dosage: 40 MG, 0-0-1-0, TABLETS
     Route: 048
  6. VITAMIN B12 [Concomitant]
     Active Substance: CYANOCOBALAMIN
     Dosage: 1 MG, 1-0-0-0, DRAGEES
     Route: 048
  7. RISPERIDONE [Concomitant]
     Active Substance: RISPERIDONE
     Dosage: 0.5 MG, 0-0-2-0, TABLETS
     Route: 048
  8. ASPIRIN [Concomitant]
     Active Substance: ASPIRIN
     Dosage: 100 MG, 0-1-0-0, TABLETS
     Route: 048
  9. PANTOPRAZOLE [Concomitant]
     Active Substance: PANTOPRAZOLE
     Dosage: 40 MG, 1-0-0-0, TABLETS
     Route: 048
  10. EZETIMIBE [Concomitant]
     Active Substance: EZETIMIBE
     Dosage: 10 MG, 0-0-1-0, TABLETS
     Route: 048
  11. PIPAMPERONE HYDROCHLORIDE [Concomitant]
     Active Substance: PIPAMPERONE HYDROCHLORIDE
     Dosage: 40 MG, 0-0.5-1-0, TABLETS
     Route: 048
  12. AMLODIPINE [Concomitant]
     Active Substance: AMLODIPINE BESYLATE
     Dosage: 5 MG, NK, TABLETS
     Route: 048
  13. FERRO-SANOL DUODENAL [Concomitant]
     Active Substance: FERROUS GLYCINE SULFATE
     Dosage: 0-1-0-0, CAPSULES
     Route: 048

REACTIONS (4)
  - General physical health deterioration [Unknown]
  - Dizziness [Unknown]
  - Product monitoring error [Unknown]
  - Labelled drug-drug interaction medication error [Unknown]
